FAERS Safety Report 12384245 (Version 1)
Quarter: 2016Q2

REPORT INFORMATION
  Report Type: Spontaneous
  Country: US (occurrence: None)
  Receive Date: 20160518
  Receipt Date: 20160518
  Transmission Date: 20160815
  Serious: No
  Sender: FDA-Public Use
  Company Number: None

PATIENT
  Age: 65 Year
  Sex: Male

DRUGS (1)
  1. CAPECITABINE 500MG TAB TEVA [Suspect]
     Active Substance: CAPECITABINE
     Dosage: 2500 MG (3 TABS QAM AND 2 TABS PO
     Route: 048
     Dates: start: 20160224

REACTIONS (2)
  - Flatulence [None]
  - Incontinence [None]

NARRATIVE: CASE EVENT DATE: 20160501
